FAERS Safety Report 5936338-6 (Version None)
Quarter: 2008Q4

REPORT INFORMATION
  Report Type: 
  Country: None (occurrence: None)
  Receive Date: 20081030
  Receipt Date: 20081016
  Transmission Date: 20090506
  Serious: No
  Sender: FDA-Public Use
  Company Number: RU-ELI_LILLY_AND_COMPANY-RU200708002976

PATIENT
  Sex: Female

DRUGS (5)
  1. DULOXETINE HYDROCHLORIDE [Suspect]
     Indication: MAJOR DEPRESSION
     Dosage: 120 MG, DAILY (1/D)
     Route: 048
     Dates: start: 20070703
  2. AMITRIPTYLINE HCL [Concomitant]
     Indication: ANTIDEPRESSANT THERAPY
     Dosage: 75 MG, DAILY (1/D)
     Dates: start: 20070626, end: 20070702
  3. DIPHENHYDRAMINE HCL [Concomitant]
     Indication: SEDATIVE THERAPY
     Dosage: 10 MG, DAILY (1/D)
     Dates: start: 20070705, end: 20070707
  4. METAMIZOL SODIQUE [Concomitant]
     Indication: ANALGESIC THERAPY
     Dates: start: 20070717, end: 20070718
  5. DICLOFENACO                        /00372302/ [Concomitant]
     Dates: start: 20070719, end: 20070724

REACTIONS (1)
  - HYPERBILIRUBINAEMIA [None]
